FAERS Safety Report 14301828 (Version 3)
Quarter: 2018Q2

REPORT INFORMATION
  Report Type: Spontaneous
  Country: GB (occurrence: GB)
  Receive Date: 20171219
  Receipt Date: 20180607
  Transmission Date: 20180711
  Serious: Yes (Death)
  Sender: FDA-Public Use
  Company Number: US-ASTRAZENECA-2017SF28401

PATIENT
  Age: 220 Day
  Sex: Female
  Weight: 6.1 kg

DRUGS (2)
  1. SYNAGIS [Suspect]
     Active Substance: PALIVIZUMAB
     Indication: ANTIVIRAL PROPHYLAXIS
     Dosage: 91MG, STAT (IMMEDIATELY)
     Route: 030
     Dates: start: 20171110, end: 20171110
  2. SYNAGIS [Suspect]
     Active Substance: PALIVIZUMAB
     Indication: ANTIVIRAL PROPHYLAXIS
     Dosage: 91MG, STAT (IMMEDIATELY)
     Route: 030
     Dates: start: 20171019, end: 20171019

REACTIONS (1)
  - Sudden infant death syndrome [Fatal]

NARRATIVE: CASE EVENT DATE: 20171111
